FAERS Safety Report 24130756 (Version 1)
Quarter: 2024Q3

REPORT INFORMATION
  Report Type: Spontaneous
  Country: ZA (occurrence: None)
  Receive Date: 20240724
  Receipt Date: 20240724
  Transmission Date: 20241017
  Serious: Yes (Hospitalization)
  Sender: ASTRAZENECA
  Company Number: 2024A163425

PATIENT
  Age: 53 Year
  Sex: Male

DRUGS (10)
  1. DAPAGLIFLOZIN PROPANEDIOL [Suspect]
     Active Substance: DAPAGLIFLOZIN PROPANEDIOL
     Route: 048
  2. FLOSPASM [Concomitant]
     Dosage: 200.0MG UNKNOWN
  3. REHIDRAT ORANGE [Concomitant]
  4. LAXETTE [Concomitant]
  5. PERDOTOR PLUS [Concomitant]
     Dosage: 4/1.25 MG,
  6. LIPOGEN [Concomitant]
     Dosage: 80.0MG UNKNOWN
  7. EZETIMIBE [Concomitant]
     Active Substance: EZETIMIBE
     Dosage: 10.0MG UNKNOWN
  8. GLICLAZIDE [Concomitant]
     Active Substance: GLICLAZIDE
     Dosage: 60.0MG UNKNOWN
  9. ASPIRIN [Concomitant]
     Active Substance: ASPIRIN
     Dosage: 100.0MG UNKNOWN
  10. UROMAX [Concomitant]
     Dosage: 0.4MG UNKNOWN

REACTIONS (3)
  - Cystitis [Unknown]
  - Constipation [Unknown]
  - Diabetes mellitus [Unknown]
